FAERS Safety Report 9517898 (Version 2)
Quarter: 2013Q4

REPORT INFORMATION
  Report Type: Report from Study
  Country: GB (occurrence: GB)
  Receive Date: 20130912
  Receipt Date: 20131106
  Transmission Date: 20140711
  Serious: Yes (Hospitalization, Other)
  Sender: FDA-Public Use
  Company Number: GB-ROCHE-1272729

PATIENT
  Age: 81 Year
  Sex: Male

DRUGS (5)
  1. RANIBIZUMAB [Suspect]
     Indication: AGE-RELATED MACULAR DEGENERATION
     Route: 050
     Dates: start: 20100218
  2. RANIBIZUMAB [Suspect]
     Route: 050
     Dates: start: 20120822
  3. RANIBIZUMAB [Suspect]
     Route: 050
     Dates: start: 20120919
  4. RANIBIZUMAB [Suspect]
     Route: 050
     Dates: start: 20130925
  5. RANIBIZUMAB [Suspect]
     Route: 050
     Dates: start: 20131030

REACTIONS (4)
  - Rectal haemorrhage [Recovered/Resolved]
  - Haematochezia [Recovered/Resolved]
  - Large intestine polyp [Recovered/Resolved]
  - Nausea [Recovered/Resolved]
